FAERS Safety Report 4506554-9 (Version None)
Quarter: 2004Q4

REPORT INFORMATION
  Report Type: 
  Country: None (occurrence: None)
  Receive Date: 20041122
  Receipt Date: 20040823
  Transmission Date: 20050328
  Serious: Yes (Other)
  Sender: FDA-Public Use
  Company Number: 200418432GDDC

PATIENT
  Age: 72 Year
  Sex: Male

DRUGS (4)
  1. KETEK [Suspect]
     Indication: PNEUMONIA
     Route: 048
     Dates: start: 20040820, end: 20040827
  2. NOVOLIN GE NPH [Concomitant]
     Indication: DIABETES MELLITUS
     Route: 058
  3. NOVOLIN GE [Concomitant]
     Indication: DIABETES MELLITUS
     Dosage: DOSE: UNK
     Route: 058
  4. CLONAZEPAM [Concomitant]
     Indication: INSOMNIA
     Dosage: DOSE: UNK
     Route: 048

REACTIONS (3)
  - ARRHYTHMIA [None]
  - DISCOMFORT [None]
  - PALPITATIONS [None]
